FAERS Safety Report 10553804 (Version 1)
Quarter: 2014Q4

REPORT INFORMATION
  Report Type: Spontaneous
  Country: HU (occurrence: HU)
  Receive Date: 20141030
  Receipt Date: 20141030
  Transmission Date: 20150529
  Serious: Yes (Other)
  Sender: FDA-Public Use
  Company Number: HU-009507513-1410HUN011918

PATIENT
  Age: 44 Year
  Sex: Female

DRUGS (4)
  1. DIPROPHOS [Suspect]
     Active Substance: BECLOMETHASONE DIPROPIONATE\BETAMETHASONE SODIUM PHOSPHATE
     Indication: ARTHRITIS
     Dosage: ONE 1 ML AMPOULE CONTAINING INGREDIENTS EQUIVALENT TO A TOTAL OF 5 MG BETAMETHASONE
     Route: 014
     Dates: start: 20140814, end: 20140814
  2. LIDOCAINE. [Concomitant]
     Active Substance: LIDOCAINE
     Indication: ARTHRITIS
     Dosage: ONE AMPOULE OF 10 OR 20 MG LIDOCAINE HYDROCHLORIDE
     Route: 014
     Dates: start: 20140821, end: 20140821
  3. LIDOCAINE. [Concomitant]
     Active Substance: LIDOCAINE
     Dosage: ONE AMPOULE OF 10 OR 20 MG LIDOCAINE HYDROCHLORIDE
     Route: 014
     Dates: start: 20140814, end: 20140814
  4. KENALOG [Suspect]
     Active Substance: TRIAMCINOLONE ACETONIDE
     Indication: ARTHRITIS
     Dosage: 80 MG, ONCE
     Route: 014
     Dates: start: 20140821, end: 20140821

REACTIONS (16)
  - Decreased appetite [Recovered/Resolved]
  - Weight decreased [Unknown]
  - Blood pressure increased [Recovered/Resolved]
  - Insomnia [Recovered/Resolved]
  - Menstrual disorder [Recovered/Resolved]
  - Metrorrhagia [Recovered/Resolved with Sequelae]
  - Hypoaesthesia [Recovered/Resolved]
  - Subcutaneous haematoma [Recovered/Resolved]
  - Tremor [Recovered/Resolved]
  - Autoimmune thyroiditis [Unknown]
  - Heart rate increased [Recovered/Resolved]
  - Hot flush [Recovered/Resolved]
  - Anxiety [Not Recovered/Not Resolved]
  - Nervousness [Recovered/Resolved]
  - Palpitations [Recovered/Resolved]
  - Hyperhidrosis [Recovered/Resolved]

NARRATIVE: CASE EVENT DATE: 2014
